FAERS Safety Report 10172875 (Version 1)
Quarter: 2014Q2

REPORT INFORMATION
  Report Type: Spontaneous
  Country: US (occurrence: US)
  Receive Date: 20140515
  Receipt Date: 20140515
  Transmission Date: 20141212
  Serious: Yes (Other)
  Sender: FDA-Public Use
  Company Number: US-BEH-2014042474

PATIENT
  Sex: Female
  Weight: 72 kg

DRUGS (20)
  1. HIZENTRA [Suspect]
     Indication: IMMUNODEFICIENCY COMMON VARIABLE
     Route: 058
  2. HIZENTRA [Suspect]
     Route: 058
  3. AUGMENTIN [Concomitant]
     Dosage: 500-125 MG
  4. AUGMENTIN [Concomitant]
     Dosage: 875-125
  5. DIPHENHYDRAMINE [Concomitant]
  6. LIDOCAINE/PRILOCAINE [Concomitant]
  7. EPI PEN [Concomitant]
  8. IMODIUM [Concomitant]
     Dosage: 1 MG/7.5 ML
  9. HYDROCHLOROTHIAZIDE [Concomitant]
  10. KLOR-CON [Concomitant]
  11. LORTAB [Concomitant]
     Dosage: 10-500
  12. CLARITIN [Concomitant]
  13. OXYBUTYNIN [Concomitant]
  14. MIRTAZAPINE [Concomitant]
  15. OMEPRAZOLE [Concomitant]
  16. METHOCARBAMOL [Concomitant]
  17. COUMADIN [Concomitant]
  18. LIPITOR [Concomitant]
  19. DIGOXIN [Concomitant]
  20. METOPROLOL [Concomitant]

REACTIONS (1)
  - Rectal haemorrhage [Unknown]
